FAERS Safety Report 24723181 (Version 2)
Quarter: 2024Q4

REPORT INFORMATION
  Report Type: Spontaneous
  Country: BR (occurrence: BR)
  Receive Date: 20241211
  Receipt Date: 20241213
  Transmission Date: 20250114
  Serious: Yes (Hospitalization, Other)
  Sender: REGENERON
  Company Number: BR-ADIUM-BR-0906-20241206

PATIENT
  Age: 69 Year
  Sex: Male

DRUGS (2)
  1. LIBTAYO [Suspect]
     Active Substance: CEMIPLIMAB-RWLC
     Indication: Squamous cell carcinoma of skin
     Dosage: 350 MG
     Dates: start: 20240912
  2. LIBTAYO [Suspect]
     Active Substance: CEMIPLIMAB-RWLC
     Dates: start: 20240912

REACTIONS (4)
  - Depressed level of consciousness [Not Recovered/Not Resolved]
  - Condition aggravated [Not Recovered/Not Resolved]
  - Central nervous system infection [Not Recovered/Not Resolved]
  - Cough [Not Recovered/Not Resolved]
